FAERS Safety Report 23009606 (Version 2)
Quarter: 2023Q4

REPORT INFORMATION
  Report Type: Spontaneous
  Country: RO (occurrence: RO)
  Receive Date: 20230929
  Receipt Date: 20231013
  Transmission Date: 20240109
  Serious: Yes (Life-Threatening, Hospitalization, Other)
  Sender: FDA-Public Use
  Company Number: RO-BRISTOL-MYERS SQUIBB COMPANY-2023-137709

PATIENT
  Age: 76 Year

DRUGS (6)
  1. AZACITIDINE [Suspect]
     Active Substance: AZACITIDINE
     Indication: Acute erythroid leukaemia
     Dosage: FOR 5 DAYS 1ST CYCLE
  2. AZACITIDINE [Suspect]
     Active Substance: AZACITIDINE
     Dosage: 2ND CYCLE
  3. AZACITIDINE [Suspect]
     Active Substance: AZACITIDINE
     Dosage: 3RD CYCLE
  4. AZACITIDINE [Suspect]
     Active Substance: AZACITIDINE
     Dosage: 4TH CYCLE
  5. VENETOCLAX [Suspect]
     Active Substance: VENETOCLAX
     Indication: Acute erythroid leukaemia
     Dosage: 2ND CYCLE
  6. VENETOCLAX [Suspect]
     Active Substance: VENETOCLAX
     Dosage: REDUCED DOSE OF 100MG/DAY FOR 28 DAYS 1ST CYCLE

REACTIONS (4)
  - Acute pulmonary oedema [Unknown]
  - Pancytopenia [Unknown]
  - Sepsis [Unknown]
  - Off label use [Unknown]
